FAERS Safety Report 6213385-0 (Version None)
Quarter: 2009Q2

REPORT INFORMATION
  Report Type: 
  Country: None (occurrence: None)
  Receive Date: 20090603
  Receipt Date: 20090525
  Transmission Date: 20091009
  Serious: Yes (Hospitalization)
  Sender: FDA-Public Use
  Company Number: PHHY2009CA20705

PATIENT
  Sex: Female

DRUGS (10)
  1. ACLASTA [Suspect]
     Indication: OSTEOPOROSIS
     Dosage: 5 MG/100 ML, 1 IV ONCE A YEAR
     Route: 042
     Dates: start: 20090519
  2. LANOXIN [Concomitant]
     Dosage: 0.125 MG, 1 TABLET DAILY
  3. LANOXIN [Concomitant]
     Dosage: 0.063 MG, 1 TABLET DAILY
  4. IMDUR [Concomitant]
     Dosage: 60 MG, HALF TABLET DAILY
  5. FLEXERIL [Concomitant]
     Dosage: 10 MG, 1 TABLET DAILY AT BED TIME
     Dates: end: 20090430
  6. APO-TEMAZEPAM [Concomitant]
     Dosage: 30 MG, 1 CAPSULE DAILY BED TIME AS REQUIRED
     Dates: end: 20090420
  7. LECTOPAM TAB [Concomitant]
     Dosage: 3 MG, 1 TABLET DAILY AT BED TIME AS REQUIRED
  8. IMOVANE [Concomitant]
  9. ACTONEL [Concomitant]
     Dosage: 35 MG, QW
  10. CAL-500-D [Concomitant]
     Dosage: 1 DF (500MG-400 UI), BID MORNING

REACTIONS (3)
  - DIZZINESS [None]
  - PALPITATIONS [None]
  - VENTRICULAR EXTRASYSTOLES [None]
